FAERS Safety Report 13583613 (Version 2)
Quarter: 2018Q1

REPORT INFORMATION
  Report Type: Report from Study
  Country: CA (occurrence: CA)
  Receive Date: 20170526
  Receipt Date: 20180112
  Transmission Date: 20180508
  Serious: Yes (Other)
  Sender: FDA-Public Use
  Company Number: CA-AMGEN-CANSL2017047270

PATIENT
  Age: 64 Year
  Sex: Male

DRUGS (15)
  1. DIAMICRON [Concomitant]
     Active Substance: GLICLAZIDE
     Dosage: 30 MG, BID
  2. JANUVIA [Concomitant]
     Active Substance: SITAGLIPTIN PHOSPHATE
     Dosage: 100 MG, UNK
     Route: 048
  3. BISOPROLOL [Concomitant]
     Active Substance: BISOPROLOL
     Dosage: 7.5 MG, QD
     Route: 048
  4. COVERSYL [Concomitant]
     Active Substance: PERINDOPRIL
     Dosage: 8 MG, QD
     Route: 048
  5. ASA [Concomitant]
     Active Substance: ASPIRIN
     Dosage: 81 MG, UNK
  6. REPATHA [Suspect]
     Active Substance: EVOLOCUMAB
     Indication: DYSLIPIDAEMIA
  7. CHLORTHALIDONE. [Concomitant]
     Active Substance: CHLORTHALIDONE
     Dosage: 25 MG, UNK
     Route: 048
  8. LANTUS [Concomitant]
     Active Substance: INSULIN GLARGINE
  9. FENOFIBRATE. [Concomitant]
     Active Substance: FENOFIBRATE
  10. VITAMIN B12 [Concomitant]
     Active Substance: CYANOCOBALAMIN
  11. DILTIAZEM. [Concomitant]
     Active Substance: DILTIAZEM
  12. VITAMIN D [Concomitant]
     Active Substance: CHOLECALCIFEROL
  13. REPATHA [Suspect]
     Active Substance: EVOLOCUMAB
     Indication: ARTERIOSCLEROSIS
     Dosage: 140 MG/ML, Q2WK
     Route: 058
     Dates: start: 20170315, end: 20170508
  14. CIMETIDINE [Concomitant]
     Active Substance: CIMETIDINE
     Dosage: 300 MG, TID
  15. METFORMIN [Concomitant]
     Active Substance: METFORMIN HYDROCHLORIDE
     Indication: DIABETES MELLITUS
     Dosage: 500 MG, QD

REACTIONS (6)
  - Hypoglycaemia [Not Recovered/Not Resolved]
  - Nausea [Not Recovered/Not Resolved]
  - Weight decreased [Unknown]
  - Arthritis [Not Recovered/Not Resolved]
  - Abdominal discomfort [Unknown]
  - Dizziness [Unknown]

NARRATIVE: CASE EVENT DATE: 2017
